FAERS Safety Report 5101412-3 (Version None)
Quarter: 2006Q3

REPORT INFORMATION
  Report Type: 
  Country: None (occurrence: None)
  Receive Date: 20060911
  Receipt Date: 20051025
  Transmission Date: 20061208
  Serious: Yes (Life-Threatening, Hospitalization)
  Sender: FDA-Public Use
  Company Number: JP-GLAXOSMITHKLINE-B0398574A

PATIENT
  Age: 32 Year
  Sex: Male

DRUGS (4)
  1. ZIAGEN [Suspect]
     Indication: HIV INFECTION
     Dosage: 300MG TWICE PER DAY
     Route: 048
     Dates: start: 20040727, end: 20040921
  2. ZERIT [Suspect]
     Indication: HIV INFECTION
     Dosage: 30MG TWICE PER DAY
     Route: 048
     Dates: start: 20040727, end: 20040921
  3. KALETRA [Suspect]
     Indication: HIV INFECTION
     Dosage: 5CAP PER DAY
     Route: 048
     Dates: start: 20040526, end: 20040921
  4. NOVACT M [Concomitant]
     Indication: FACTOR IX DEFICIENCY
     Route: 042
     Dates: start: 20040401, end: 20040930

REACTIONS (5)
  - ASTHENIA [None]
  - BLOOD BILIRUBIN INCREASED [None]
  - HEPATIC FAILURE [None]
  - MALAISE [None]
  - NAUSEA [None]
